FAERS Safety Report 8487405-7 (Version None)
Quarter: 2012Q2

REPORT INFORMATION
  Report Type: 
  Country: None (occurrence: None)
  Receive Date: 20120628
  Receipt Date: 20120628
  Transmission Date: 20120825
  Serious: Yes (Hospitalization)
  Sender: FDA-Public Use
  Company Number: None

PATIENT
  Sex: Male

DRUGS (2)
  1. LEVETIRACETAM [Suspect]
     Indication: EPILEPSY
     Dosage: 250MG PO BID
     Route: 048
     Dates: start: 20100101, end: 20110101
  2. VIMPAT [Concomitant]

REACTIONS (4)
  - DISORIENTATION [None]
  - UNRESPONSIVE TO STIMULI [None]
  - GRAND MAL CONVULSION [None]
  - CONFUSIONAL STATE [None]
